FAERS Safety Report 15539105 (Version 1)
Quarter: 2018Q4

REPORT INFORMATION
  Report Type: Spontaneous
  Country: DE (occurrence: DE)
  Receive Date: 20181022
  Receipt Date: 20181022
  Transmission Date: 20190205
  Serious: Yes (Hospitalization)
  Sender: FDA-Public Use
  Company Number: PHHY2018DE131859

PATIENT
  Sex: Male

DRUGS (8)
  1. METOHEXAL SUCC [Suspect]
     Active Substance: METOPROLOL SUCCINATE
     Indication: PRODUCT USED FOR UNKNOWN INDICATION
     Dosage: UNK UNK, BID
     Route: 065
  2. LISINOPRIL. [Concomitant]
     Active Substance: LISINOPRIL
     Indication: PRODUCT USED FOR UNKNOWN INDICATION
     Dosage: UNK
     Route: 065
  3. XARELTO [Concomitant]
     Active Substance: RIVAROXABAN
     Indication: PRODUCT USED FOR UNKNOWN INDICATION
     Dosage: UNK
     Route: 065
  4. PANTOPRAZOL [Concomitant]
     Active Substance: PANTOPRAZOLE SODIUM
     Indication: PRODUCT USED FOR UNKNOWN INDICATION
     Dosage: UNK
     Route: 065
  5. METFORMIN [Concomitant]
     Active Substance: METFORMIN HYDROCHLORIDE
     Indication: PRODUCT USED FOR UNKNOWN INDICATION
     Dosage: UNK
     Route: 065
  6. AMIOHEXAL [Suspect]
     Active Substance: AMIODARONE
     Dosage: 1 DF, QD
     Route: 065
     Dates: start: 2018
  7. AMIOHEXAL [Suspect]
     Active Substance: AMIODARONE
     Indication: HEART RATE INCREASED
     Dosage: 1 DF, BID
     Route: 065
     Dates: start: 2018
  8. TORASEMID [Concomitant]
     Active Substance: TORSEMIDE
     Indication: PRODUCT USED FOR UNKNOWN INDICATION
     Dosage: UNK
     Route: 065

REACTIONS (5)
  - Skin ulcer [Unknown]
  - Extrasystoles [Recovering/Resolving]
  - Sleep apnoea syndrome [Not Recovered/Not Resolved]
  - Lymphatic disorder [Unknown]
  - Heart rate decreased [Unknown]

NARRATIVE: CASE EVENT DATE: 2000
